FAERS Safety Report 8699629 (Version 5)
Quarter: 2013Q2

REPORT INFORMATION
  Report Type: Spontaneous
  Country: US (occurrence: US)
  Receive Date: 20120802
  Receipt Date: 20130425
  Transmission Date: 20140414
  Serious: Yes (Hospitalization)
  Sender: FDA-Public Use
  Company Number: US-INCYTE CORPORATION-2012IN001397

PATIENT
  Age: 76 Year
  Sex: Female
  Weight: 77.1 kg

DRUGS (6)
  1. JAKAFI [Suspect]
     Indication: POLYCYTHAEMIA VERA
     Dosage: 20 MG, BID
     Route: 048
     Dates: start: 20120403, end: 20120822
  2. JAKAFI [Suspect]
     Dosage: 20 MG, BID
     Route: 048
     Dates: start: 201208
  3. ATENOLOL [Concomitant]
  4. DABIGATRAN [Concomitant]
  5. NORVASC [Concomitant]
  6. LEVOTHYROXINE SODIUM [Concomitant]

REACTIONS (3)
  - Spinal compression fracture [Recovered/Resolved]
  - Fall [Recovered/Resolved]
  - Hip fracture [Unknown]
